FAERS Safety Report 15195448 (Version 2)
Quarter: 2018Q3

REPORT INFORMATION
  Report Type: Spontaneous
  Country: JP (occurrence: JP)
  Receive Date: 20180725
  Receipt Date: 20180827
  Transmission Date: 20181010
  Serious: Yes (Other)
  Sender: FDA-Public Use
  Company Number: PHJP2018JP014017

PATIENT
  Weight: 40 kg

DRUGS (2)
  1. NEORAL [Suspect]
     Active Substance: CYCLOSPORINE
     Dosage: 150 MG, UNK
     Route: 048
     Dates: start: 20180712
  2. NEORAL [Suspect]
     Active Substance: CYCLOSPORINE
     Indication: INTERSTITIAL LUNG DISEASE
     Dosage: 100 MG, UNK
     Route: 048
     Dates: start: 20180704

REACTIONS (3)
  - Interstitial lung disease [Unknown]
  - Product use in unapproved indication [Unknown]
  - Lung infiltration [Unknown]

NARRATIVE: CASE EVENT DATE: 20180704
